FAERS Safety Report 5556780-5 (Version None)
Quarter: 2007Q4

REPORT INFORMATION
  Report Type: 
  Country: None (occurrence: None)
  Receive Date: 20071130
  Receipt Date: 20070918
  Transmission Date: 20080405
  Serious: No
  Sender: FDA-Public Use
  Company Number: 2007PV028647

PATIENT
  Age: 37 Year
  Sex: Female
  Weight: 59 kg

DRUGS (3)
  1. EXENATIDE(EXENATIDE) PEN,DISPOSABLE [Suspect]
     Indication: TYPE 2 DIABETES MELLITUS
     Dosage: 5 UG, 2/D, SUBCUTANEOUS
     Route: 058
     Dates: start: 20061214, end: 20070106
  2. GLUCOPHAGE [Concomitant]
  3. ACTOS [Concomitant]

REACTIONS (6)
  - ABDOMINAL PAIN [None]
  - ABDOMINAL PAIN UPPER [None]
  - ANOREXIA [None]
  - CROHN'S DISEASE [None]
  - DIARRHOEA [None]
  - NAUSEA [None]
